FAERS Safety Report 8001533-1 (Version None)
Quarter: 2011Q4

REPORT INFORMATION
  Report Type: 
  Country: None (occurrence: None)
  Receive Date: 20111222
  Receipt Date: 20111219
  Transmission Date: 20120403
  Serious: Yes (Hospitalization, Congenital Anomaly, Other)
  Sender: FDA-Public Use
  Company Number: US-PFIZER INC-2011227136

PATIENT
  Sex: Male
  Weight: 2.54 kg

DRUGS (1)
  1. ZOLOFT [Suspect]
     Dosage: UNK
     Route: 064

REACTIONS (15)
  - VENTRICULAR SEPTAL DEFECT [None]
  - PULMONARY OEDEMA [None]
  - DIASTOLIC DYSFUNCTION [None]
  - CARDIAC FAILURE CONGESTIVE [None]
  - FAILURE TO THRIVE [None]
  - RIGHT VENTRICULAR HYPERTROPHY [None]
  - PULMONARY ARTERY DILATATION [None]
  - PULMONARY VALVE INCOMPETENCE [None]
  - ATRIAL SEPTAL DEFECT [None]
  - DILATATION VENTRICULAR [None]
  - MATERNAL EXPOSURE TIMING UNSPECIFIED [None]
  - ATRIOVENTRICULAR BLOCK COMPLETE [None]
  - PULMONARY HYPERTENSION [None]
  - CARDIOMEGALY [None]
  - CYANOSIS [None]
